FAERS Safety Report 5624467-6 (Version None)
Quarter: 2008Q1

REPORT INFORMATION
  Report Type: 
  Country: None (occurrence: None)
  Receive Date: 20080211
  Receipt Date: 20080211
  Transmission Date: 20080703
  Serious: Yes (Hospitalization)
  Sender: FDA-Public Use
  Company Number: None

PATIENT
  Age: 72 Year
  Sex: Male

DRUGS (1)
  1. VARDENAFIL [Suspect]
     Dosage: 20MG PRN PO
     Route: 048
     Dates: start: 20071004, end: 20071004

REACTIONS (3)
  - PALPITATIONS [None]
  - PRIAPISM [None]
  - SYNCOPE [None]
